FAERS Safety Report 5895668-7 (Version None)
Quarter: 2008Q3

REPORT INFORMATION
  Report Type: 
  Country: None (occurrence: None)
  Receive Date: 20080924
  Receipt Date: 20040405
  Transmission Date: 20090109
  Serious: No
  Sender: FDA-Public Use
  Company Number: US-BAYER-200412484BWH

PATIENT
  Age: 81 Year
  Sex: Male
  Weight: 79 kg

DRUGS (6)
  1. CIPRO XR [Suspect]
     Indication: INFECTION PROPHYLAXIS
     Dosage: UNIT DOSE: 1000 MG
     Route: 048
     Dates: start: 20040101, end: 20040101
  2. CIPRO [Suspect]
     Indication: PROSTATIC PAIN
     Dosage: UNIT DOSE: 500 MG
     Route: 048
     Dates: start: 20040203, end: 20040206
  3. ATENOLOL [Concomitant]
     Indication: PALPITATIONS
     Dosage: TOTAL DAILY DOSE: 12.5 MG
     Route: 048
  4. FLECAINIDE ACETATE [Concomitant]
     Indication: CARDIAC MURMUR
     Dosage: UNIT DOSE: 50 MG
     Route: 065
  5. MIRAPEX [Concomitant]
     Indication: RESTLESS LEGS SYNDROME
     Dosage: UNIT DOSE: 0.125 MG
     Route: 048
  6. XANAX [Concomitant]
     Indication: NERVOUSNESS
     Dosage: UNIT DOSE: 0.25 MG
     Route: 048

REACTIONS (6)
  - ASTHENIA [None]
  - DISORIENTATION [None]
  - HEADACHE [None]
  - MUSCULAR WEAKNESS [None]
  - PAIN [None]
  - PAIN IN EXTREMITY [None]
